FAERS Safety Report 14213333 (Version 1)
Quarter: 2017Q4

REPORT INFORMATION
  Report Type: Spontaneous
  Country: US (occurrence: None)
  Receive Date: 20171122
  Receipt Date: 20171122
  Transmission Date: 20180321
  Serious: No
  Sender: FDA-Public Use
  Company Number: None

PATIENT
  Sex: Male

DRUGS (1)
  1. REMICADE [Suspect]
     Active Substance: INFLIXIMAB
     Dosage: 250MG Q 8 WEEKS SC
     Route: 058
     Dates: start: 20170629, end: 20171120

REACTIONS (2)
  - Infection [None]
  - Skin papilloma [None]
